FAERS Safety Report 8996144 (Version 1)
Quarter: 2013Q1

REPORT INFORMATION
  Report Type: Other
  Country: GB (occurrence: GB)
  Receive Date: 20130103
  Receipt Date: 20130103
  Transmission Date: 20140127
  Serious: Yes (Other)
  Sender: FDA-Public Use
  Company Number: GB-WATSON-2012-23062

PATIENT
  Age: 37 Year
  Sex: Male
  Weight: 76 kg

DRUGS (2)
  1. MIRTAZAPINE (UNKNOWN) [Suspect]
     Indication: DEPRESSION
     Dosage: 15 MG, UNKNOWN
     Route: 048
     Dates: start: 20121206
  2. SERTRALINE [Concomitant]
     Indication: PRODUCT USED FOR UNKNOWN INDICATION
     Dosage: UNK
     Route: 065

REACTIONS (2)
  - Anger [Not Recovered/Not Resolved]
  - Irritability [Not Recovered/Not Resolved]
